FAERS Safety Report 24016239 (Version 2)
Quarter: 2024Q3

REPORT INFORMATION
  Report Type: Spontaneous
  Country: US (occurrence: US)
  Receive Date: 20240626
  Receipt Date: 20240705
  Transmission Date: 20241016
  Serious: No
  Sender: SANOFI AVENTIS
  Company Number: US-SANOFI-02095869

PATIENT
  Age: 90 Year
  Sex: Female

DRUGS (1)
  1. LANTUS SOLOSTAR [Suspect]
     Active Substance: INSULIN GLARGINE
     Indication: Diabetes mellitus
     Dosage: 8 IU, QD
     Dates: start: 2021

REACTIONS (3)
  - Blood glucose increased [Unknown]
  - Visual impairment [Unknown]
  - Product storage error [Unknown]
